FAERS Safety Report 7893870-6 (Version None)
Quarter: 2011Q4

REPORT INFORMATION
  Report Type: 
  Country: None (occurrence: None)
  Receive Date: 20111104
  Receipt Date: 20111025
  Transmission Date: 20120403
  Serious: Yes (Other)
  Sender: FDA-Public Use
  Company Number: PHHY2011DE95342

PATIENT
  Age: 53 Year
  Sex: Female

DRUGS (2)
  1. OFLOXACIN [Concomitant]
     Dosage: UNK UKN, UNK
     Dates: start: 20111026
  2. TASIGNA [Suspect]
     Dosage: UNK UKN, UNK
     Route: 048
     Dates: start: 20110728

REACTIONS (1)
  - CYSTITIS [None]
